FAERS Safety Report 24438975 (Version 12)
Quarter: 2025Q1

REPORT INFORMATION
  Report Type: Spontaneous
  Country: CN (occurrence: CN)
  Receive Date: 20241015
  Receipt Date: 20250120
  Transmission Date: 20250408
  Serious: Yes (Life-Threatening, Hospitalization, Other)
  Sender: JOHNSON AND JOHNSON
  Company Number: CN-JNJFOC-20241029256

PATIENT
  Age: 61 Year
  Sex: Male

DRUGS (1)
  1. TREMFYA [Suspect]
     Active Substance: GUSELKUMAB
     Indication: Product used for unknown indication
     Route: 065

REACTIONS (13)
  - Anaphylactic shock [Not Recovered/Not Resolved]
  - Herpes zoster [Recovering/Resolving]
  - Delirium [Recovering/Resolving]
  - Hypernatraemia [Unknown]
  - Dysphagia [Unknown]
  - Renal disorder [Unknown]
  - Condition aggravated [Recovering/Resolving]
  - Inflammation [Recovering/Resolving]
  - Liver disorder [Not Recovered/Not Resolved]
  - Dysstasia [Unknown]
  - Pneumonia [Unknown]
  - Diarrhoea [Unknown]
  - Cardiac disorder [Unknown]

NARRATIVE: CASE EVENT DATE: 20241007
